FAERS Safety Report 19578400 (Version 6)
Quarter: 2022Q1

REPORT INFORMATION
  Report Type: Spontaneous
  Country: GB (occurrence: GB)
  Receive Date: 20210719
  Receipt Date: 20220303
  Transmission Date: 20220423
  Serious: Yes (Other)
  Sender: FDA-Public Use
  Company Number: GB-EMA-DD-20200914-ABDUL_J-155600

PATIENT
  Sex: Male

DRUGS (16)
  1. COTRIMOXAZOLE [Suspect]
     Active Substance: SULFAMETHOXAZOLE\TRIMETHOPRIM
     Indication: Product used for unknown indication
     Dosage: UNK (UNK REPORTED: THERAPY START DATE / THERAPY END DATE ASKED BUT UNKNOWN)
     Route: 065
  2. FLUCONAZOLE [Suspect]
     Active Substance: FLUCONAZOLE
     Indication: Product used for unknown indication
     Dosage: 50 MG (50 MILLIGRAM REPORTED: THERAPY START DATE / THERAPY END DATE ASKED BUT UNKNOWN)
     Route: 065
  3. ACYCLOVIR [Suspect]
     Active Substance: ACYCLOVIR
     Indication: Product used for unknown indication
     Dosage: 200 MG (200 MILLIGRAMREPORTED: THERAPY START DATE / THERAPY END DATE ASKED BUT UNKNOWN)
     Route: 065
  4. SULFAMETHOXAZOLE [Suspect]
     Active Substance: SULFAMETHOXAZOLE
     Indication: Product used for unknown indication
     Dosage: UNK; UNK UNKREPORTED: THERAPY START DATE / THERAPY END DATE ASKED BUT UNKNOWN
     Route: 065
  5. DEXAMETHASONE [Suspect]
     Active Substance: DEXAMETHASONE
     Indication: Product used for unknown indication
     Dosage: 40 MG (40 MILLIGRAMREPORTED: THERAPY START DATE / THERAPY END DATE ASKED BUT UNKNOWN)
     Route: 065
  6. NINLARO [Suspect]
     Active Substance: IXAZOMIB CITRATE
     Indication: Product used for unknown indication
     Dosage: 3 MG (3 MILLIGRAMREPORTED: THERAPY START DATE / THERAPY END DATE ASKED BUT UNKNOWN)
     Route: 048
  7. REVLIMID [Suspect]
     Active Substance: LENALIDOMIDE
     Indication: Product used for unknown indication
     Dosage: 10 MG (10 MILLIGRAMREPORTED: THERAPY START DATE / THERAPY END DATE ASKED BUT UNKNOWN)
     Route: 048
  8. REVLIMID [Suspect]
     Active Substance: LENALIDOMIDE
     Dosage: 10 MG (10 MILLIGRAMREPORTED: THERAPY START DATE / THERAPY END DATE ASKED BUT UNKNOWN)
     Route: 048
  9. LANSOPRAZOLE [Suspect]
     Active Substance: LANSOPRAZOLE
     Indication: Product used for unknown indication
     Dosage: 30 MG (30 MILLIGRAMREPORTED: THERAPY START DATE / THERAPY END DATE ASKED BUT UNKNOWN)
     Route: 065
  10. IXAZOMIB CITRATE [Suspect]
     Active Substance: IXAZOMIB CITRATE
     Indication: Product used for unknown indication
     Dosage: 3 MG , 3 MILLIGRAMREPORTED: THERAPY START DATE / THERAPY END DATE ASKED BUT UNKNOWN
     Route: 065
  11. TRIMETHOPRIM [Suspect]
     Active Substance: TRIMETHOPRIM
     Indication: Product used for unknown indication
     Dosage: UNK; UNK UNKREPORTED: THERAPY START DATE / THERAPY END DATE ASKED BUT UNKNOWN
     Route: 065
  12. TRIMETHOPRIM [Suspect]
     Active Substance: TRIMETHOPRIM
     Dosage: 50 MG
     Route: 065
  13. DEXAMETHASONE SODIUM PHOSPHATE [Suspect]
     Active Substance: DEXAMETHASONE SODIUM PHOSPHATE
     Indication: Product used for unknown indication
     Dosage: 40 MG
     Route: 065
  14. TRIMETHOPRIM [Suspect]
     Active Substance: TRIMETHOPRIM
     Indication: Product used for unknown indication
     Dosage: UNK(UNKREPORTED: THERAPY START DATE / THERAPY END DATE ASKED BUT UNKNOWN   )
     Route: 042
  15. SULFAMETHOXAZOLE [Suspect]
     Active Substance: SULFAMETHOXAZOLE
     Indication: Product used for unknown indication
     Dosage: UNK (UNKREPORTED: THERAPY START DATE / THERAPY END DATE ASKED BUT UNKNOWN)
     Route: 042
  16. IXAZOMIB [Concomitant]
     Active Substance: IXAZOMIB
     Indication: Product used for unknown indication
     Dosage: 3 MG (3 MILLIGRAM REPORTED: THERAPY START DATE / THERAPY END DATE ASKED BUT UNKNOWN)
     Route: 048

REACTIONS (1)
  - Full blood count decreased [Unknown]
